FAERS Safety Report 14409933 (Version 1)
Quarter: 2018Q1

REPORT INFORMATION
  Report Type: Spontaneous
  Country: US (occurrence: US)
  Receive Date: 20180119
  Receipt Date: 20180119
  Transmission Date: 20180509
  Serious: No
  Sender: FDA-Public Use
  Company Number: US-BAYER-2018-012207

PATIENT
  Age: 87 Year
  Sex: Female

DRUGS (1)
  1. ALEVE [Suspect]
     Active Substance: NAPROXEN SODIUM
     Indication: PAIN
     Dosage: 2 DF, 2 AT 11 AM, 2 AT 12 PM
     Route: 048
     Dates: start: 20180118

REACTIONS (2)
  - Extra dose administered [Unknown]
  - Muscular weakness [Unknown]

NARRATIVE: CASE EVENT DATE: 20180118
